FAERS Safety Report 7601408-3 (Version None)
Quarter: 2011Q3

REPORT INFORMATION
  Report Type: 
  Country: None (occurrence: None)
  Receive Date: 20110711
  Receipt Date: 20110706
  Transmission Date: 20111222
  Serious: Yes (Other)
  Sender: FDA-Public Use
  Company Number: TR-MERCK-1104TUR00004

PATIENT
  Age: 29 Year
  Sex: Male
  Weight: 90 kg

DRUGS (1)
  1. CANCIDAS [Suspect]
     Indication: FUNGAL INFECTION
     Route: 041
     Dates: start: 20110413, end: 20110414

REACTIONS (5)
  - LOCALISED OEDEMA [None]
  - HAEMOGLOBIN DECREASED [None]
  - RASH PAPULAR [None]
  - SKIN PLAQUE [None]
  - FACE OEDEMA [None]
